FAERS Safety Report 12616389 (Version 1)
Quarter: 2016Q3

REPORT INFORMATION
  Report Type: Spontaneous
  Country: BR (occurrence: BR)
  Receive Date: 20160802
  Receipt Date: 20160802
  Transmission Date: 20161109
  Serious: Yes (Other)
  Sender: FDA-Public Use
  Company Number: BR-PFIZER INC-2015349365

PATIENT
  Age: 54 Year
  Sex: Female
  Weight: 118 kg

DRUGS (5)
  1. PRISTIQ EXTENDED-RELEASE [Suspect]
     Active Substance: DESVENLAFAXINE SUCCINATE
     Indication: DEPRESSION
     Dosage: 1 TABLET OF 100 MG, DAILY PER NIGHT
     Route: 048
     Dates: start: 2010
  2. PRISTIQ EXTENDED-RELEASE [Suspect]
     Active Substance: DESVENLAFAXINE SUCCINATE
     Indication: STRESS
  3. PRISTIQ EXTENDED-RELEASE [Suspect]
     Active Substance: DESVENLAFAXINE SUCCINATE
     Indication: PANIC DISORDER
  4. APRAZ [Concomitant]
     Dosage: 2 MG (1 MG TABLET), DAILY
     Dates: start: 2001
  5. EFICENTUS [Concomitant]
     Indication: PANIC ATTACK
     Dosage: 75 MG 1 TABLET PER DAY
     Dates: start: 201605

REACTIONS (11)
  - Hypertension [Unknown]
  - Breast cyst [Unknown]
  - Umbilical hernia [Unknown]
  - Hypothyroidism [Unknown]
  - Arrhythmia [Unknown]
  - Peripheral vascular disorder [Unknown]
  - Uterine leiomyoma [Unknown]
  - Memory impairment [Not Recovered/Not Resolved]
  - Osteoarthritis [Unknown]
  - Osteoporosis [Unknown]
  - Diabetes mellitus [Unknown]
